FAERS Safety Report 15577917 (Version 3)
Quarter: 2019Q2

REPORT INFORMATION
  Report Type: Spontaneous
  Country: US (occurrence: US)
  Receive Date: 20181102
  Receipt Date: 20190614
  Transmission Date: 20190711
  Serious: No
  Sender: FDA-Public Use
  Company Number: US-PFIZER INC-2017417315

PATIENT
  Age: 79 Year
  Sex: Female

DRUGS (1)
  1. XELJANZ [Suspect]
     Active Substance: TOFACITINIB CITRATE
     Indication: RHEUMATOID ARTHRITIS
     Dosage: 5 MG, 2X/DAY
     Dates: start: 2005

REACTIONS (3)
  - Hypoacusis [Unknown]
  - Dysgraphia [Unknown]
  - Eye disorder [Unknown]

NARRATIVE: CASE EVENT DATE: 2005
